FAERS Safety Report 5275599-6 (Version None)
Quarter: 2007Q1

REPORT INFORMATION
  Report Type: 
  Country: None (occurrence: None)
  Receive Date: 20070326
  Receipt Date: 20070320
  Transmission Date: 20070707
  Serious: Yes (Death)
  Sender: FDA-Public Use
  Company Number: PHBS2007DK04860

PATIENT
  Age: 51 Year
  Sex: Male
  Weight: 80 kg

DRUGS (2)
  1. CORODIL [Concomitant]
     Dosage: 20 MG, BID
     Dates: end: 20070208
  2. DIOVAN COMP [Suspect]
     Indication: HYPERTENSION
     Dosage: UNK, QD
     Route: 048
     Dates: start: 20070208

REACTIONS (1)
  - CORONARY ARTERY OCCLUSION [None]
